FAERS Safety Report 13803717 (Version 1)
Quarter: 2017Q3

REPORT INFORMATION
  Report Type: Spontaneous
  Country: US (occurrence: US)
  Receive Date: 20170728
  Receipt Date: 20170728
  Transmission Date: 20171127
  Serious: Yes (Other)
  Sender: FDA-Public Use
  Company Number: None

PATIENT
  Age: 53 Year
  Sex: Female
  Weight: 87.62 kg

DRUGS (2)
  1. ATORVASTATIN 40MG [Suspect]
     Active Substance: ATORVASTATIN
     Indication: MYALGIA
     Dosage: 2016, ONLY FOR FEW DAYS
     Route: 048
     Dates: start: 2016
  2. LOVASTATIN 40MG [Suspect]
     Active Substance: LOVASTATIN
     Indication: MYALGIA
     Dosage: 2016, FOR FEW DAYS
     Route: 048
     Dates: start: 2016

REACTIONS (2)
  - Headache [None]
  - Myalgia [None]
